FAERS Safety Report 4389039-2 (Version None)
Quarter: 2004Q2

REPORT INFORMATION
  Report Type: 
  Country: None (occurrence: None)
  Receive Date: 20040628
  Receipt Date: 20040617
  Transmission Date: 20050107
  Serious: Yes (Hospitalization)
  Sender: FDA-Public Use
  Company Number: 2004220005FR

PATIENT
  Age: 41 Year
  Sex: Female

DRUGS (1)
  1. SULFASALAZINE [Suspect]
     Dosage: 2 G/DAY, ORAL
     Route: 048
     Dates: start: 20040317, end: 20040420

REACTIONS (8)
  - ASTHENIA [None]
  - DRUG RASH WITH EOSINOPHILIA AND SYSTEMIC SYMPTOMS [None]
  - HEADACHE [None]
  - HEPATITIS [None]
  - HEPATOMEGALY [None]
  - LYMPHADENOPATHY [None]
  - PYREXIA [None]
  - REFUSAL OF TREATMENT BY PATIENT [None]
